FAERS Safety Report 4453268-X (Version None)
Quarter: 2004Q3

REPORT INFORMATION
  Report Type: 
  Country: None (occurrence: None)
  Receive Date: 20040902
  Receipt Date: 20040507
  Transmission Date: 20050211
  Serious: No
  Sender: FDA-Public Use
  Company Number: 200417856BWH

PATIENT
  Age: 64 Year
  Sex: Male
  Weight: 104.3273 kg

DRUGS (7)
  1. LEVITRA [Suspect]
     Indication: ERECTILE DYSFUNCTION
     Dosage: 20 MG, TOTAL DAILY, ORAL
     Route: 048
     Dates: start: 20040401
  2. LEVITRA [Suspect]
     Dosage: 15 MG, PRN, ORAL
     Route: 048
  3. ZOLOFT [Concomitant]
  4. WELLBUTRIN [Concomitant]
  5. XANAX [Concomitant]
  6. MULTI-VITAMIN [Concomitant]
  7. MAGNESIUM SUPPLEMENT [Concomitant]

REACTIONS (5)
  - ERECTILE DYSFUNCTION [None]
  - FLUSHING [None]
  - HEADACHE [None]
  - NAUSEA [None]
  - PEYRONIE'S DISEASE [None]
